FAERS Safety Report 24173578 (Version 2)
Quarter: 2024Q4

REPORT INFORMATION
  Report Type: Spontaneous
  Country: US (occurrence: US)
  Receive Date: 20240805
  Receipt Date: 20241003
  Transmission Date: 20250114
  Serious: Yes (Hospitalization, Other)
  Sender: NOVO NORDISK
  Company Number: US-NOVOPROD-1262916

PATIENT
  Age: 64 Year
  Sex: Male

DRUGS (4)
  1. VICTOZA [Suspect]
     Active Substance: LIRAGLUTIDE
     Indication: Type 2 diabetes mellitus
     Dosage: 1.5 MG
     Route: 058
  2. VICTOZA [Suspect]
     Active Substance: LIRAGLUTIDE
     Indication: Cardiac disorder
  3. TRESIBA [Suspect]
     Active Substance: INSULIN DEGLUDEC
     Indication: Type 2 diabetes mellitus
     Dosage: 48 IU, QD (BEDTIME)
     Route: 058
  4. NOVOLOG [Suspect]
     Active Substance: INSULIN ASPART
     Indication: Type 2 diabetes mellitus
     Dosage: 4 TIMES DAILY- SLIDING SCALE WITH EACH MEAL
     Route: 058

REACTIONS (8)
  - Aortic valve replacement [Unknown]
  - Cardiac operation [Unknown]
  - Atrial fibrillation [Unknown]
  - Spinal laminectomy [Unknown]
  - Fall [Unknown]
  - Intracranial aneurysm [Not Recovered/Not Resolved]
  - Haematoma [Not Recovered/Not Resolved]
  - Pneumonia [Unknown]

NARRATIVE: CASE EVENT DATE: 20190101
